FAERS Safety Report 14903561 (Version 1)
Quarter: 2018Q2

REPORT INFORMATION
  Report Type: Spontaneous
  Country: US (occurrence: US)
  Receive Date: 20180516
  Receipt Date: 20180516
  Transmission Date: 20180711
  Serious: Yes (Hospitalization)
  Sender: FDA-Public Use
  Company Number: US-ANIPHARMA-2018-US-006963

PATIENT
  Age: 28 Year
  Sex: Female

DRUGS (2)
  1. IBUPROFEN (NON-SPECIFIC) [Suspect]
     Active Substance: IBUPROFEN
     Dosage: 500 TABLETS
     Route: 048
  2. SLEEP PM [Suspect]
     Active Substance: UNSPECIFIED INGREDIENT
     Dosage: 120 TABLETS
     Route: 048

REACTIONS (7)
  - Lactic acidosis [Unknown]
  - Depressed level of consciousness [Unknown]
  - Sinus tachycardia [Unknown]
  - Overdose [Unknown]
  - Electrocardiogram QT prolonged [Unknown]
  - Electrocardiogram QRS complex prolonged [Unknown]
  - Suicide attempt [Unknown]
